FAERS Safety Report 15950109 (Version 1)
Quarter: 2019Q1

REPORT INFORMATION
  Report Type: Spontaneous
  Country: FR (occurrence: FR)
  Receive Date: 20190211
  Receipt Date: 20190211
  Transmission Date: 20190417
  Serious: Yes (Other)
  Sender: FDA-Public Use
  Company Number: FR-BAYER-2019-021940

PATIENT
  Age: 31 Year
  Sex: Female

DRUGS (1)
  1. JAYDESS [Suspect]
     Active Substance: LEVONORGESTREL
     Indication: CONTRACEPTION
     Dosage: 14 MCG/24HR, CONT
     Route: 015

REACTIONS (4)
  - Pain in extremity [Recovered/Resolved]
  - Monoparesis [Recovered/Resolved]
  - Peripheral venous disease [Recovered/Resolved]
  - Chronic fatigue syndrome [Recovered/Resolved]

NARRATIVE: CASE EVENT DATE: 20170101
